FAERS Safety Report 6849635-7 (Version None)
Quarter: 2010Q3

REPORT INFORMATION
  Report Type: 
  Country: None (occurrence: None)
  Receive Date: 20100716
  Receipt Date: 20071002
  Transmission Date: 20110219
  Serious: No
  Sender: FDA-Public Use
  Company Number: US-PFIZER INC-2007083696

PATIENT
  Sex: Male
  Weight: 82.7 kg

DRUGS (4)
  1. CHANTIX [Suspect]
     Indication: SMOKING CESSATION THERAPY
     Dates: start: 20071001
  2. TOPROL-XL [Concomitant]
     Indication: BLOOD PRESSURE ABNORMAL
  3. LOTENSIN [Concomitant]
  4. OTHER HYPNOTICS AND SEDATIVES [Concomitant]
     Indication: INSOMNIA

REACTIONS (2)
  - ABDOMINAL PAIN UPPER [None]
  - DRUG DOSE OMISSION [None]
